FAERS Safety Report 5012965-8 (Version None)
Quarter: 2006Q2

REPORT INFORMATION
  Report Type: 
  Country: None (occurrence: None)
  Receive Date: 20060530
  Receipt Date: 20060518
  Transmission Date: 20061013
  Serious: Yes (Hospitalization)
  Sender: FDA-Public Use
  Company Number: FR-AVENTIS-200611875FR

PATIENT
  Age: 81 Year
  Sex: Female
  Weight: 50 kg

DRUGS (6)
  1. LASILIX [Suspect]
     Route: 048
     Dates: start: 20060101, end: 20060503
  2. CELECTOL [Suspect]
     Route: 048
     Dates: end: 20060503
  3. FLECAINIDE ACETATE [Suspect]
     Route: 048
     Dates: end: 20060503
  4. LEVOTHYROX [Concomitant]
  5. DOGMATIL [Concomitant]
  6. ATACAND [Concomitant]

REACTIONS (7)
  - BLOOD CREATININE INCREASED [None]
  - BRADYCARDIA [None]
  - COGNITIVE DISORDER [None]
  - CREATININE RENAL CLEARANCE DECREASED [None]
  - FALL [None]
  - MALAISE [None]
  - OVERDOSE [None]
